FAERS Safety Report 5701884-7 (Version None)
Quarter: 2008Q2

REPORT INFORMATION
  Report Type: 
  Country: None (occurrence: None)
  Receive Date: 20080411
  Receipt Date: 20080404
  Transmission Date: 20081010
  Serious: Yes (Hospitalization)
  Sender: FDA-Public Use
  Company Number: PHBS2008TW03928

PATIENT
  Age: 29 Year
  Sex: Male

DRUGS (2)
  1. CLOZAPINE [Suspect]
     Indication: SCHIZOPHRENIA
     Dosage: 100 MG/DAY
     Route: 065
  2. BIPERIDEN HYDROCHLORIDE TAB [Concomitant]

REACTIONS (3)
  - CONDITION AGGRAVATED [None]
  - HOSTILITY [None]
  - IRRITABILITY [None]
